FAERS Safety Report 15233395 (Version 1)
Quarter: 2018Q3

REPORT INFORMATION
  Report Type: Spontaneous
  Country: CA (occurrence: CA)
  Receive Date: 20180802
  Receipt Date: 20180802
  Transmission Date: 20181010
  Serious: Yes (Other)
  Sender: FDA-Public Use
  Company Number: CA-TEVA-2018-CA-934970

PATIENT
  Age: 29 Year
  Sex: Male

DRUGS (1)
  1. MOXIFLOXACIN. [Suspect]
     Active Substance: MOXIFLOXACIN
     Indication: CHEST PAIN
     Route: 048

REACTIONS (4)
  - Chest pain [Unknown]
  - Paraesthesia [Unknown]
  - Drug ineffective [Unknown]
  - Dyspnoea [Unknown]
